FAERS Safety Report 5757270-7 (Version None)
Quarter: 2008Q2

REPORT INFORMATION
  Report Type: 
  Country: None (occurrence: None)
  Receive Date: 20080603
  Receipt Date: 20080520
  Transmission Date: 20081010
  Serious: Yes (Hospitalization, Other)
  Sender: FDA-Public Use
  Company Number: US-ELI_LILLY_AND_COMPANY-US200804006252

PATIENT
  Sex: Female
  Weight: 65.306 kg

DRUGS (18)
  1. FORTEO [Suspect]
     Indication: OSTEOPOROSIS
     Dosage: 20 UG, DAILY (1/D)
     Dates: start: 20041001, end: 20051201
  2. FORTEO [Suspect]
     Dosage: 20 UG, DAILY (1/D)
     Dates: start: 20080311
  3. LASIX [Concomitant]
     Dosage: 120 MG, DAILY (1/D)
     Dates: start: 20080326
  4. NASONEX [Concomitant]
     Dosage: 2 SPRAYS DAILY
     Dates: start: 20080311
  5. POTASSIUM CHLORIDE [Concomitant]
     Dosage: 20 MEQ, DAILY (1/D)
     Dates: start: 20080311
  6. PROTONIX [Concomitant]
     Dosage: 40 MG, 2/D
     Dates: start: 20080117
  7. FOLIC ACID [Concomitant]
     Dosage: 2 MG, DAILY (1/D)
     Dates: start: 20080107
  8. XOPENEX [Concomitant]
     Dosage: 90 UG, 3/D
     Dates: start: 20071231
  9. SINGULAIR [Concomitant]
     Dosage: 10 MG, DAILY (1/D)
     Dates: start: 20071231
  10. OXYGEN [Concomitant]
     Dosage: 2 LITER, OTHER
     Dates: start: 20071231
  11. ADVAIR DISKUS 100/50 [Concomitant]
     Dosage: 1 D/F, 2/D
     Dates: start: 20071231
  12. SYNTHROID [Concomitant]
     Dosage: 0.112 MG, DAILY (1/D)
  13. TRICOR [Concomitant]
     Dates: start: 20071219
  14. ASCORBIC ACID [Concomitant]
     Dosage: 500 MG, DAILY (1/D)
     Dates: start: 20070925
  15. SIMVASTATIN [Concomitant]
     Dosage: 40 MG, DAILY (1/D)
     Dates: start: 20070925
  16. VITAMINS, OTHER COMBINATIONS [Concomitant]
     Dosage: 1 D/F, DAILY (1/D)
  17. CALCIUM [Concomitant]
     Dosage: 1200 MG, DAILY (1/D)
     Dates: start: 20070925
  18. ESTRADIOL [Concomitant]
     Dosage: 1 MG, DAILY (1/D)
     Dates: start: 20070703

REACTIONS (4)
  - BLADDER CANCER [None]
  - CEREBROVASCULAR ACCIDENT [None]
  - DEHYDRATION [None]
  - RENAL FAILURE ACUTE [None]
